FAERS Safety Report 6926195-3 (Version None)
Quarter: 2010Q3

REPORT INFORMATION
  Report Type: 
  Country: None (occurrence: None)
  Receive Date: 20100816
  Receipt Date: 20100802
  Transmission Date: 20110219
  Serious: Yes (Hospitalization)
  Sender: FDA-Public Use
  Company Number: GB-MYLANLABS-2010S1013858

PATIENT
  Age: 23 Year
  Sex: Male

DRUGS (1)
  1. BUPROPION HCL [Suspect]
     Indication: OVERDOSE
     Dosage: MODIFIED-RELEASE; INGESTED 38 BUPROPION 150MG TABLETS
     Route: 048

REACTIONS (9)
  - ATAXIA [None]
  - BRUXISM [None]
  - CEREBELLAR SYNDROME [None]
  - DYSARTHRIA [None]
  - GRAND MAL CONVULSION [None]
  - HALLUCINATION [None]
  - INTENTION TREMOR [None]
  - OVERDOSE [None]
  - PAST-POINTING [None]
